FAERS Safety Report 6635886-3 (Version None)
Quarter: 2010Q1

REPORT INFORMATION
  Report Type: 
  Country: None (occurrence: None)
  Receive Date: 20100225
  Receipt Date: 20091014
  Transmission Date: 20100710
  Serious: Yes (Hospitalization)
  Sender: FDA-Public Use
  Company Number: US-JNJFOC-20091005326

PATIENT
  Age: 69 Year
  Sex: Female
  Weight: 89.8122 kg

DRUGS (7)
  1. MOTRIN [Suspect]
     Indication: TOOTHACHE
     Dosage: ORAL; SEE IMAGE
     Route: 048
     Dates: start: 20090711, end: 20090711
  2. MOTRIN [Suspect]
     Indication: TOOTHACHE
     Dosage: ORAL; SEE IMAGE
     Route: 048
     Dates: start: 20080101
  3. ANTITHROMBOTICS (ANTITHROMBOTIC AGENTS) [Concomitant]
  4. ASPIRIN [Concomitant]
  5. CLOPIDOGREL [Concomitant]
  6. METOPROLOL (METOPROLOL) [Concomitant]
  7. SIMVASTATIN [Concomitant]

REACTIONS (1)
  - HYPERSENSITIVITY [None]
